FAERS Safety Report 7972201 (Version 6)
Quarter: 2012Q4

REPORT INFORMATION
  Report Type: 
  Country: CA (occurrence: CA)
  Receive Date: 20110602
  Receipt Date: 20121106
  Transmission Date: 20130627
  Serious: Yes (Hospitalization, Other)
  Sender: FDA-Public Use
  Company Number: CA-ROCHE-GNE319657

PATIENT
  Age: 77 Year
  Sex: Female

DRUGS (4)
  1. XOLAIR [Suspect]
     Indication: ASTHMA
     Route: 058
     Dates: start: 20110125
  2. PREDNISONE [Concomitant]
  3. PULMICORT [Concomitant]
     Indication: PRODUCT USED FOR UNKNOWN INDICATION
  4. VENTOLIN [Concomitant]

REACTIONS (5)
  - Pneumonia [Recovering/Resolving]
  - Asthma [Recovering/Resolving]
  - Malaise [Unknown]
  - Dyspnoea [Unknown]
  - Secretion discharge [Unknown]
